FAERS Safety Report 8055398-2 (Version None)
Quarter: 2012Q1

REPORT INFORMATION
  Report Type: 
  Country: None (occurrence: None)
  Receive Date: 20120119
  Receipt Date: 20120112
  Transmission Date: 20120608
  Serious: Yes (Death, Hospitalization)
  Sender: FDA-Public Use
  Company Number: FR-SANOFI-AVENTIS-2012SA001980

PATIENT
  Age: 72 Year
  Sex: Male
  Weight: 61.5 kg

DRUGS (3)
  1. CABAZITAXEL [Suspect]
     Indication: PROSTATE CANCER
     Route: 042
     Dates: start: 20111209, end: 20111209
  2. CABAZITAXEL [Suspect]
     Route: 042
     Dates: start: 20111230, end: 20111230
  3. PREDNISONE [Suspect]
     Indication: PROSTATE CANCER
     Route: 048
     Dates: start: 20111209, end: 20111230

REACTIONS (1)
  - FEBRILE BONE MARROW APLASIA [None]
